FAERS Safety Report 13996776 (Version 5)
Quarter: 2018Q1

REPORT INFORMATION
  Report Type: Spontaneous
  Country: US (occurrence: US)
  Receive Date: 20170921
  Receipt Date: 20180201
  Transmission Date: 20180508
  Serious: No
  Sender: FDA-Public Use
  Company Number: US-PFIZER INC-2017405184

PATIENT
  Age: 58 Year
  Sex: Female
  Weight: 74.39 kg

DRUGS (6)
  1. EUCRISA [Suspect]
     Active Substance: CRISABOROLE
     Indication: DRY SKIN
     Dosage: 2%, CYCLIC (7 DAYS ON; 7 DAYS OFF)
     Dates: start: 201707, end: 201709
  2. ESTRADIOL. [Concomitant]
     Active Substance: ESTRADIOL
     Dosage: UNK
  3. EUCRISA [Suspect]
     Active Substance: CRISABOROLE
     Indication: EYE IRRITATION
     Dosage: UNK, DAILY (APPLY SPARINGLY 1-2X DAILY)
     Route: 061
     Dates: start: 201708, end: 201708
  4. EUCRISA [Suspect]
     Active Substance: CRISABOROLE
     Indication: EYELIDS PRURITUS
     Dosage: UNK, DAILY (1-2 TIMES DAILY)
     Route: 061
     Dates: start: 20170621, end: 20170830
  5. EUCRISA [Suspect]
     Active Substance: CRISABOROLE
     Indication: RASH
  6. EUCRISA [Suspect]
     Active Substance: CRISABOROLE
     Indication: RASH PRURITIC

REACTIONS (3)
  - Drug ineffective [Recovered/Resolved]
  - Drug hypersensitivity [Recovered/Resolved]
  - Eye swelling [Recovered/Resolved]

NARRATIVE: CASE EVENT DATE: 201707
